FAERS Safety Report 11729221 (Version 6)
Quarter: 2016Q2

REPORT INFORMATION
  Report Type: Spontaneous
  Country: US (occurrence: US)
  Receive Date: 20151112
  Receipt Date: 20160607
  Transmission Date: 20160815
  Serious: Yes (Life-Threatening, Hospitalization, Other)
  Sender: FDA-Public Use
  Company Number: US-MDT-ADR-2015-02145

PATIENT
  Age: 39 Year
  Sex: Female

DRUGS (12)
  1. FLEXERIL [Suspect]
     Active Substance: CYCLOBENZAPRINE HYDROCHLORIDE
  2. BACLOFEN. [Suspect]
     Active Substance: BACLOFEN
     Dosage: 1511.8 MCG/DAY
     Route: 037
  3. VIMPAT [Suspect]
     Active Substance: LACOSAMIDE
  4. TERBUTALINE [Suspect]
     Active Substance: TERBUTALINE
  5. DECADRON [Suspect]
     Active Substance: DEXAMETHASONE
  6. CLARITIN [Suspect]
     Active Substance: LORATADINE
  7. DITROPAN [Suspect]
     Active Substance: OXYBUTYNIN CHLORIDE
  8. KAY CIEL [Suspect]
     Active Substance: POTASSIUM CHLORIDE
  9. PROTONIX [Suspect]
     Active Substance: PANTOPRAZOLE SODIUM
  10. EFFEXOR [Suspect]
     Active Substance: VENLAFAXINE HYDROCHLORIDE
  11. KEPPRA [Suspect]
     Active Substance: LEVETIRACETAM
  12. DESYREL [Suspect]
     Active Substance: TRAZODONE HYDROCHLORIDE

REACTIONS (9)
  - Meningitis bacterial [Unknown]
  - Mental status changes [Unknown]
  - Body temperature increased [Unknown]
  - CSF glucose decreased [Unknown]
  - Implant site infection [Unknown]
  - CSF protein increased [Unknown]
  - Wound dehiscence [Unknown]
  - CSF neutrophil count increased [Unknown]
  - Medical device site erythema [Unknown]

NARRATIVE: CASE EVENT DATE: 201511
